FAERS Safety Report 14339388 (Version 1)
Quarter: 2017Q4

REPORT INFORMATION
  Report Type: Spontaneous
  Country: GB (occurrence: GB)
  Receive Date: 20171230
  Receipt Date: 20171230
  Transmission Date: 20180321
  Serious: Yes (Death, Hospitalization)
  Sender: FDA-Public Use
  Company Number: GB-AUROBINDO-AUR-APL-2017-47810

PATIENT
  Age: 96 Year
  Sex: Female
  Weight: 60 kg

DRUGS (5)
  1. XARELTO [Suspect]
     Active Substance: RIVAROXABAN
     Indication: DEEP VEIN THROMBOSIS
     Dosage: 30 MG, UNK
     Route: 048
     Dates: start: 201702
  2. XARELTO [Suspect]
     Active Substance: RIVAROXABAN
     Dosage: 20 MG, UNK
     Route: 048
     Dates: start: 2017, end: 20170508
  3. CEFALEXIN [Suspect]
     Active Substance: CEPHALEXIN
     Indication: URINARY TRACT INFECTION
     Dosage: UNK
     Route: 065
  4. PROTON PUMP INHIBITORS [Concomitant]
     Active Substance: UNSPECIFIED INGREDIENT
     Indication: PRODUCT USED FOR UNKNOWN INDICATION
     Dosage: UNK
     Route: 065
  5. IBUPROFEN. [Suspect]
     Active Substance: IBUPROFEN
     Indication: PAIN
     Dosage: 1200 MG, DAILY
     Route: 048
     Dates: start: 2017, end: 20170508

REACTIONS (4)
  - Incorrect dose administered [Unknown]
  - Melaena [Unknown]
  - Acute kidney injury [Unknown]
  - Upper gastrointestinal haemorrhage [Fatal]

NARRATIVE: CASE EVENT DATE: 20170508
